FAERS Safety Report 14393062 (Version 1)
Quarter: 2018Q1

REPORT INFORMATION
  Report Type: Spontaneous
  Country: US (occurrence: US)
  Receive Date: 20180113
  Receipt Date: 20180113
  Transmission Date: 20180509
  Serious: Yes (Life-Threatening, Hospitalization)
  Sender: FDA-Public Use
  Company Number: None

PATIENT
  Age: 46 Year
  Sex: Female
  Weight: 56.25 kg

DRUGS (3)
  1. NUVARING [Suspect]
     Active Substance: ETHINYL ESTRADIOL\ETONOGESTREL
     Indication: MENSTRUAL CYCLE MANAGEMENT
     Dosage: ?          QUANTITY:1 INSERTED RING;OTHER FREQUENCY:3 WEEKS;?
     Route: 067
     Dates: start: 20170501
  2. VITAMIN D [Concomitant]
     Active Substance: CHOLECALCIFEROL
  3. CALCIUM [Concomitant]
     Active Substance: CALCIUM

REACTIONS (5)
  - Phlebitis [None]
  - Pulmonary embolism [None]
  - Pain in extremity [None]
  - Thrombosis [None]
  - Musculoskeletal pain [None]

NARRATIVE: CASE EVENT DATE: 20180112
